FAERS Safety Report 14330916 (Version 2)
Quarter: 2018Q1

REPORT INFORMATION
  Report Type: Spontaneous
  Country: CZ (occurrence: CZ)
  Receive Date: 20171228
  Receipt Date: 20180207
  Transmission Date: 20180509
  Serious: Yes (Other)
  Sender: FDA-Public Use
  Company Number: CZ-TEVA-2017-CZ-835042

PATIENT
  Age: 75 Year
  Sex: Female
  Weight: 80 kg

DRUGS (11)
  1. PARALEN [Concomitant]
     Active Substance: ACETAMINOPHEN
     Indication: PAIN
     Route: 048
  2. PARTRAMEC [Concomitant]
     Indication: HIATUS HERNIA
     Dosage: OCCASIONALLY
     Route: 048
  3. GLIMEPIRIDE. [Suspect]
     Active Substance: GLIMEPIRIDE
     Indication: TYPE 2 DIABETES MELLITUS
     Dosage: 4 MILLIGRAM DAILY;
     Route: 048
  4. GLUCOPHAGE XR [Suspect]
     Active Substance: METFORMIN HYDROCHLORIDE
     Indication: TYPE 2 DIABETES MELLITUS
     Dosage: 3000 MILLIGRAM DAILY;
     Route: 048
  5. LYRICA [Concomitant]
     Active Substance: PREGABALIN
     Dosage: 300 MILLIGRAM DAILY;
     Route: 048
  6. ACTOS [Suspect]
     Active Substance: PIOGLITAZONE HYDROCHLORIDE
     Indication: TYPE 2 DIABETES MELLITUS
     Dosage: 45 MILLIGRAM DAILY;
     Route: 048
  7. NEURONTIN [Concomitant]
     Active Substance: GABAPENTIN
     Indication: POLYNEUROPATHY
     Dosage: 900 MILLIGRAM DAILY;
     Route: 048
  8. CIPRALEX [Concomitant]
     Active Substance: ESCITALOPRAM OXALATE
     Dosage: 5 MILLIGRAM DAILY;
     Route: 048
  9. TAMOXIFEN [Concomitant]
     Active Substance: TAMOXIFEN
     Indication: BREAST CANCER
     Route: 048
  10. NIMESIL [Concomitant]
     Active Substance: NIMESULIDE
     Indication: PAIN
     Route: 048
  11. NEURONTIN 400 MG [Concomitant]
     Indication: POLYNEUROPATHY
     Dosage: 400 MILLIGRAM DAILY;
     Route: 048

REACTIONS (1)
  - Diabetic metabolic decompensation [Recovered/Resolved]
